FAERS Safety Report 8092319-0 (Version None)
Quarter: 2012Q1

REPORT INFORMATION
  Report Type: 
  Country: None (occurrence: None)
  Receive Date: 20120125
  Receipt Date: 20120116
  Transmission Date: 20120608
  Serious: Yes (Hospitalization)
  Sender: FDA-Public Use
  Company Number: AUR-APL-2012-00573

PATIENT
  Age: 48 Year
  Sex: Male

DRUGS (3)
  1. METRONIDAZOLE [Suspect]
     Indication: GASTROINTESTINAL DISORDER
  2. SUCRALFATE [Suspect]
     Indication: GASTROINTESTINAL DISORDER
  3. CIPROFLOXACIN [Suspect]
     Indication: GASTROINTESTINAL DISORDER

REACTIONS (2)
  - LEUKOCYTOCLASTIC VASCULITIS [None]
  - CELLULITIS [None]
